FAERS Safety Report 6914984-0 (Version None)
Quarter: 2010Q3

REPORT INFORMATION
  Report Type: 
  Country: None (occurrence: None)
  Receive Date: 20100809
  Receipt Date: 20100801
  Transmission Date: 20110219
  Serious: Yes (Other)
  Sender: FDA-Public Use
  Company Number: US-JNJCH-2010017911

PATIENT
  Sex: Female

DRUGS (1)
  1. VISINE-A [Suspect]
     Indication: EYE PRURITUS
     Dosage: TEXT:AS DIRECTED
     Route: 047

REACTIONS (5)
  - BLEPHAROSPASM [None]
  - BLISTER [None]
  - EYE DISCHARGE [None]
  - EYELID DISORDER [None]
  - IMPAIRED DRIVING ABILITY [None]
